FAERS Safety Report 8575625-2 (Version None)
Quarter: 2012Q3

REPORT INFORMATION
  Report Type: 
  Country: None (occurrence: None)
  Receive Date: 20120807
  Receipt Date: 20120801
  Transmission Date: 20120928
  Serious: Yes (Life-Threatening, Hospitalization)
  Sender: FDA-Public Use
  Company Number: CZ-BRISTOL-MYERS SQUIBB COMPANY-16590739

PATIENT
  Age: 69 Year
  Sex: Male
  Weight: 63 kg

DRUGS (3)
  1. CETUXIMAB [Suspect]
     Indication: COLORECTAL CANCER METASTATIC
     Dosage: 13MAR-02APR12,250MG/M2,1 IN 1WK 11MAY12-UNK,50MG/M2 4TH INF ON 2APR12
     Route: 042
     Dates: start: 20120313
  2. IRINOTECAN HCL [Suspect]
     Indication: COLORECTAL CANCER METASTATIC
     Dosage: 13MAR-26MAR12 11MAY12-UNK 2ND INF 26MAR12
     Route: 042
     Dates: start: 20120313
  3. MEGACE [Concomitant]

REACTIONS (1)
  - PULMONARY EMBOLISM [None]
